FAERS Safety Report 4288849-X (Version None)
Quarter: 2004Q1

REPORT INFORMATION
  Report Type: 
  Country: None (occurrence: None)
  Receive Date: 20040203
  Receipt Date: 20031105
  Transmission Date: 20041129
  Serious: Yes (Other)
  Sender: FDA-Public Use
  Company Number: 200328136BWH

PATIENT
  Age: 31 Year
  Sex: Male
  Weight: 106.5953 kg

DRUGS (3)
  1. AVELOX [Suspect]
     Indication: BRONCHITIS
     Dosage: 400 MG, ONCE, ORAL
     Route: 048
     Dates: start: 20031105
  2. AVELOX [Suspect]
     Indication: SINUSITIS
     Dosage: 400 MG, ONCE, ORAL
     Route: 048
     Dates: start: 20031105
  3. AVELOX [Suspect]
     Indication: WHITE BLOOD CELL COUNT INCREASED
     Dosage: 400 MG, ONCE, ORAL
     Route: 048
     Dates: start: 20031105

REACTIONS (2)
  - ANXIETY [None]
  - SINUS TACHYCARDIA [None]
